FAERS Safety Report 23250102 (Version 2)
Quarter: 2023Q4

REPORT INFORMATION
  Report Type: Other
  Country: US (occurrence: None)
  Receive Date: 20231201
  Receipt Date: 20231207
  Transmission Date: 20240110
  Serious: Yes (Death)
  Sender: FDA-Public Use
  Company Number: US-ROCHE-3467983

PATIENT
  Age: 92 Year
  Sex: Female

DRUGS (17)
  1. ESBRIET [Suspect]
     Active Substance: PIRFENIDONE
     Indication: Idiopathic pulmonary fibrosis
     Dosage: TAKE 2 TABLET(S) BY MOUTH IN THE MORNING, AT NOON, AND AT BEDTIME
     Route: 048
  2. ESBRIET [Suspect]
     Active Substance: PIRFENIDONE
     Dosage: TAKE 3 TABLETS BY MOUTH, 3 TIMES A DAY WITH MEALS
     Route: 048
  3. ASCORBIC ACID [Concomitant]
     Active Substance: ASCORBIC ACID
     Route: 048
  4. CYANOCOBALAMIN [Concomitant]
     Active Substance: CYANOCOBALAMIN
     Route: 048
  5. COLACE [Concomitant]
     Active Substance: DOCUSATE SODIUM
     Route: 048
  6. NEXIUM [Concomitant]
     Active Substance: ESOMEPRAZOLE MAGNESIUM
     Dosage: TAKE ONE TABLET BY MOUTH ONE TIME A DAY
     Route: 048
  7. FLONASE [Concomitant]
     Active Substance: FLUTICASONE PROPIONATE
     Dosage: 50 MCG, SPRAY 1 SPRAY BY INTRANASAL ROUTE EVERYDAY IN EACH NOSTRIL
  8. ATROVENT [Concomitant]
     Active Substance: IPRATROPIUM BROMIDE
     Dosage: INSTILL 2 SPRAY BY NASAL ROUTE TWO TIMES A DAY
  9. COZAAR [Concomitant]
     Active Substance: LOSARTAN POTASSIUM
     Dosage: TAKE 1 TABLET BY MOUTH ONE TIME A DAY
     Route: 048
  10. MELATONIN [Concomitant]
     Active Substance: MELATONIN
     Route: 060
  11. NAMENDA [Concomitant]
     Active Substance: MEMANTINE HYDROCHLORIDE
     Dosage: TAKE ONE TABLET (10 MG) BY MOUTH TWICE A DAY
     Route: 048
  12. ZOFRAN [Concomitant]
     Active Substance: ONDANSETRON HYDROCHLORIDE
     Route: 048
  13. FIBERCON [Concomitant]
     Active Substance: CALCIUM POLYCARBOPHIL
     Dosage: TAKE 1 TABLET BY MOUTH
     Route: 048
  14. MIRALAX [Concomitant]
     Active Substance: POLYETHYLENE GLYCOL 3350
     Route: 048
  15. ZOCOR [Concomitant]
     Active Substance: SIMVASTATIN
     Dosage: TAKE 1 TABLET BY MOUTH EVERY DAY AT NIGHT
     Route: 048
  16. ALDACTAZIDE [Concomitant]
     Active Substance: HYDROCHLOROTHIAZIDE\SPIRONOLACTONE
     Dosage: TAKE 1 TABLET BY MOUTH EVERY DAY
     Route: 048
  17. VITAMIN E [Concomitant]
     Active Substance: .ALPHA.-TOCOPHEROL
     Route: 048

REACTIONS (1)
  - Death [Fatal]
